FAERS Safety Report 8521598-8 (Version None)
Quarter: 2012Q3

REPORT INFORMATION
  Report Type: 
  Country: None (occurrence: None)
  Receive Date: 20120719
  Receipt Date: 20120716
  Transmission Date: 20120928
  Serious: Yes (Death, Hospitalization, Other)
  Sender: FDA-Public Use
  Company Number: PHEH2012US014000

PATIENT
  Sex: Female

DRUGS (2)
  1. RECLAST [Suspect]
     Route: 042
  2. ANTIARRHYTHMICS [Concomitant]

REACTIONS (4)
  - RESPIRATORY FAILURE [None]
  - ARTHROPATHY [None]
  - PNEUMONIA [None]
  - CELLULITIS [None]
